FAERS Safety Report 7130309-2 (Version None)
Quarter: 2010Q4

REPORT INFORMATION
  Report Type: 
  Country: None (occurrence: None)
  Receive Date: 20101201
  Receipt Date: 20101116
  Transmission Date: 20110411
  Serious: Yes (Hospitalization)
  Sender: FDA-Public Use
  Company Number: PHHY2010NL77635

PATIENT
  Sex: Male

DRUGS (3)
  1. ZOMETA [Suspect]
     Dosage: 4MG/5ML PER 28 DAYS
     Dates: start: 20090526
  2. ZOMETA [Suspect]
     Dosage: 4MG/5ML PER 28 DAYS
     Dates: start: 20101019
  3. ZOMETA [Suspect]
     Dosage: 4MG/5ML PER 28 DAYS
     Dates: start: 20101116

REACTIONS (5)
  - FACIAL PAIN [None]
  - PAIN [None]
  - SALIVARY HYPERSECRETION [None]
  - SKIN IRRITATION [None]
  - SWELLING FACE [None]
